FAERS Safety Report 20155498 (Version 1)
Quarter: 2021Q4

REPORT INFORMATION
  Report Type: Spontaneous
  Country: CZ (occurrence: CZ)
  Receive Date: 20211207
  Receipt Date: 20211207
  Transmission Date: 20220303
  Serious: Yes (Hospitalization)
  Sender: FDA-Public Use
  Company Number: CZ-MYLANLABS-2021M1089246

PATIENT
  Age: 53 Year
  Sex: Male

DRUGS (1)
  1. PACLITAXEL [Suspect]
     Active Substance: PACLITAXEL
     Indication: Kaposi^s sarcoma
     Dosage: UNK (AS 2ND LINE OF CHEMOTHERAPY)
     Dates: start: 202101, end: 202107

REACTIONS (3)
  - Lymphoedema [Recovered/Resolved]
  - Superinfection bacterial [Recovered/Resolved]
  - Drug resistance [Unknown]
